FAERS Safety Report 5097841-7 (Version None)
Quarter: 2006Q3

REPORT INFORMATION
  Report Type: 
  Country: None (occurrence: None)
  Receive Date: 20060905
  Receipt Date: 20060829
  Transmission Date: 20061208
  Serious: Yes (Life-Threatening, Hospitalization)
  Sender: FDA-Public Use
  Company Number: 2006-144533-NL

PATIENT
  Age: 78 Year
  Sex: Female

DRUGS (1)
  1. DANAPAROID SODIUM [Suspect]
     Indication: HEPARIN-INDUCED THROMBOCYTOPENIA
     Dosage: 200 ANTI_XA Q1HR PARENTERAL
     Route: 051
     Dates: start: 20050525, end: 20050531

REACTIONS (3)
  - HEPARIN-INDUCED THROMBOCYTOPENIA [None]
  - PULMONARY EMBOLISM [None]
  - RESPIRATORY GAS EXCHANGE DISORDER [None]
